FAERS Safety Report 23750088 (Version 2)
Quarter: 2024Q2

REPORT INFORMATION
  Report Type: Report from Study
  Country: US (occurrence: US)
  Receive Date: 20240417
  Receipt Date: 20240603
  Transmission Date: 20240716
  Serious: No
  Sender: FDA-Public Use
  Company Number: US-AstraZeneca-CH-00603558A

PATIENT
  Sex: Female
  Weight: 51.709 kg

DRUGS (1)
  1. STRENSIQ [Suspect]
     Active Substance: ASFOTASE ALFA
     Indication: Product used for unknown indication
     Dosage: 104 MILLIGRAM, TIW
     Route: 058
     Dates: start: 202404

REACTIONS (1)
  - Weight decreased [Unknown]
